FAERS Safety Report 19860700 (Version 1)
Quarter: 2021Q3

REPORT INFORMATION
  Report Type: Spontaneous
  Country: US (occurrence: US)
  Receive Date: 20210921
  Receipt Date: 20210921
  Transmission Date: 20211014
  Serious: Yes (Other)
  Sender: FDA-Public Use
  Company Number: None

PATIENT
  Age: 59 Year
  Sex: Female
  Weight: 61.2 kg

DRUGS (11)
  1. BRILINTA [Concomitant]
     Active Substance: TICAGRELOR
  2. METOPROLOL SUCCINATE ER [Concomitant]
     Active Substance: METOPROLOL SUCCINATE
  3. EVEROLIMUD?ELUTING PLAT?NUM CHROMIUM CORNARY STENT SYSYSTEM [Concomitant]
  4. ROSUVASTATIN. [Concomitant]
     Active Substance: ROSUVASTATIN
  5. XYZAL ALLERGY 24HR [Suspect]
     Active Substance: LEVOCETIRIZINE DIHYDROCHLORIDE
     Indication: SEASONAL ALLERGY
     Dosage: ?          QUANTITY:1 TABLET(S);?
     Route: 048
     Dates: start: 20210920, end: 20210921
  6. GUNDRY MD ENERGY RENEW [Concomitant]
  7. ASPIRIN EC 81 MG [Concomitant]
  8. LOSARTAN POTASSIUM. [Concomitant]
     Active Substance: LOSARTAN POTASSIUM
  9. SYNERGY [Concomitant]
  10. RITUAL ESSENTIALS FOR WOMEN 50+ [Concomitant]
  11. OVEGA 3 500 MG [Concomitant]

REACTIONS (5)
  - Hypoaesthesia oral [None]
  - Blood pressure increased [None]
  - Aggression [None]
  - Headache [None]
  - Agitation [None]

NARRATIVE: CASE EVENT DATE: 20210920
